FAERS Safety Report 8336990-4 (Version None)
Quarter: 2012Q2

REPORT INFORMATION
  Report Type: 
  Country: None (occurrence: None)
  Receive Date: 20120501
  Receipt Date: 20120416
  Transmission Date: 20120825
  Serious: Yes (Other)
  Sender: FDA-Public Use
  Company Number: DSJ-2012-07397

PATIENT
  Sex: Female

DRUGS (4)
  1. GLIMEPIRIDE (GLIMEPIRIDE) (GLIMEPIRIDE) [Concomitant]
  2. FUROSEMIDE [Suspect]
     Indication: HYPERTENSION
     Dosage: 40 MG, SUBLINGUAL
     Route: 060
  3. BENICAR HCT [Suspect]
     Indication: HYPERTENSION
     Dosage: 80 / 50 MG (2 IN 1 D), PER ORAL; 40/25 MG (1 IN 1 D), PER ORAL; 80/50 MG (2 IN 1 D), PER ORAL
     Route: 048
  4. METFORMIN HCL [Concomitant]

REACTIONS (10)
  - BLOOD PRESSURE INCREASED [None]
  - THERAPY CESSATION [None]
  - ECONOMIC PROBLEM [None]
  - TREATMENT NONCOMPLIANCE [None]
  - CONDITION AGGRAVATED [None]
  - DIABETES MELLITUS [None]
  - MALAISE [None]
  - OVERDOSE [None]
  - POLYURIA [None]
  - INAPPROPRIATE SCHEDULE OF DRUG ADMINISTRATION [None]
